FAERS Safety Report 7860703-3 (Version None)
Quarter: 2011Q4

REPORT INFORMATION
  Report Type: 
  Country: None (occurrence: None)
  Receive Date: 20111027
  Receipt Date: 20111012
  Transmission Date: 20120403
  Serious: Yes (Hospitalization)
  Sender: FDA-Public Use
  Company Number: US-BAYER-2011-055386

PATIENT
  Age: 26 Year
  Sex: Female
  Weight: 61.224 kg

DRUGS (3)
  1. YAZ [Suspect]
     Dosage: UNK
     Dates: start: 20090101, end: 20090101
  2. WELLBUTRIN [Concomitant]
     Indication: DEPRESSION
  3. VIRAL VACCINES [Concomitant]

REACTIONS (4)
  - CEREBROVASCULAR ACCIDENT [None]
  - INJURY [None]
  - BLINDNESS [None]
  - PAIN [None]
